FAERS Safety Report 5888670-2 (Version None)
Quarter: 2008Q3

REPORT INFORMATION
  Report Type: 
  Country: None (occurrence: None)
  Receive Date: 20080916
  Receipt Date: 20080911
  Transmission Date: 20090109
  Serious: Yes (Death)
  Sender: FDA-Public Use
  Company Number: MSTR-NO-0809S-0065

PATIENT
  Age: 60 Year
  Sex: Male

DRUGS (1)
  1. METASTRON [Suspect]
     Indication: METASTATIC PAIN
     Dosage: 141 MBQ, SINGLE DOSE, I.V.
     Route: 042
     Dates: start: 20080723, end: 20080723

REACTIONS (2)
  - CONDITION AGGRAVATED [None]
  - PROSTATE CANCER [None]
